FAERS Safety Report 9171288 (Version 26)
Quarter: 2015Q2

REPORT INFORMATION
  Report Type: Spontaneous
  Country: CA (occurrence: CA)
  Receive Date: 20130319
  Receipt Date: 20150415
  Transmission Date: 20150821
  Serious: Yes (Hospitalization, Other)
  Sender: FDA-Public Use
  Company Number: CA-ROCHE-GNE313842

PATIENT
  Age: 65 Year
  Sex: Male

DRUGS (10)
  1. XOLAIR [Suspect]
     Active Substance: OMALIZUMAB
     Indication: ASTHMA
     Route: 058
     Dates: start: 20101102
  2. XOLAIR [Suspect]
     Active Substance: OMALIZUMAB
     Route: 058
     Dates: start: 20140429
  3. CLAVULIN [Concomitant]
     Active Substance: AMOXICILLIN\CLAVULANIC ACID
     Dosage: FOR 4 WEEKS
     Route: 065
  4. XOLAIR [Suspect]
     Active Substance: OMALIZUMAB
     Route: 058
     Dates: start: 20140916
  5. XOLAIR [Suspect]
     Active Substance: OMALIZUMAB
     Route: 058
     Dates: start: 20141111
  6. SINGULAIR [Concomitant]
     Active Substance: MONTELUKAST SODIUM
     Indication: PRODUCT USED FOR UNKNOWN INDICATION
  7. XOLAIR [Suspect]
     Active Substance: OMALIZUMAB
     Route: 058
     Dates: start: 20130402
  8. SPIRIVA [Concomitant]
     Active Substance: TIOTROPIUM BROMIDE MONOHYDRATE
     Indication: PRODUCT USED FOR UNKNOWN INDICATION
  9. FOSAMAX [Concomitant]
     Active Substance: ALENDRONATE SODIUM
     Route: 065
  10. SYMBICORT [Concomitant]
     Active Substance: BUDESONIDE\FORMOTEROL FUMARATE DIHYDRATE

REACTIONS (25)
  - Infection [Recovered/Resolved]
  - Secretion discharge [Recovered/Resolved]
  - Drug ineffective [Unknown]
  - Oedema [Unknown]
  - Dizziness [Unknown]
  - Asthma [Not Recovered/Not Resolved]
  - Road traffic accident [Unknown]
  - Gait disturbance [Unknown]
  - Productive cough [Recovering/Resolving]
  - Acne [Unknown]
  - Nausea [Unknown]
  - Blood pressure decreased [Unknown]
  - Fatigue [Unknown]
  - Osteoarthritis [Unknown]
  - Blood pressure systolic increased [Unknown]
  - Herpes zoster [Unknown]
  - Cataract [Unknown]
  - Bursitis [Unknown]
  - Fall [Unknown]
  - Upper limb fracture [Unknown]
  - Inguinal hernia [Unknown]
  - Respiratory tract inflammation [Unknown]
  - Skin lesion [Unknown]
  - Choking [Unknown]
  - Weight decreased [Unknown]

NARRATIVE: CASE EVENT DATE: 20110202
